FAERS Safety Report 19109723 (Version 8)
Quarter: 2021Q2

REPORT INFORMATION
  Report Type: Spontaneous
  Country: ES (occurrence: ES)
  Receive Date: 20210409
  Receipt Date: 20210529
  Transmission Date: 20210717
  Serious: Yes (Life-Threatening, Hospitalization, Other)
  Sender: FDA-Public Use
  Company Number: ES-AUROBINDO-AUR-APL-2021-014523

PATIENT
  Age: 44 Year
  Sex: Female

DRUGS (3)
  1. DULOXETINE 30 MG [Suspect]
     Active Substance: DULOXETINE
     Indication: PRODUCT USED FOR UNKNOWN INDICATION
     Dosage: 30 MILLIGRAM, 3 PACKAGES OF DULOXETINE
     Route: 048
  2. DULOXETINE 30 MG [Suspect]
     Active Substance: DULOXETINE
     Indication: SUICIDAL IDEATION
     Dosage: 80 DOSAGE FORM, ONCE A DAY
     Route: 048
  3. LORAZEPAM. [Concomitant]
     Active Substance: LORAZEPAM
     Indication: MIXED ANXIETY AND DEPRESSIVE DISORDER
     Dosage: UNK
     Route: 065

REACTIONS (18)
  - Intentional self-injury [Unknown]
  - Self-injurious ideation [Recovered/Resolved]
  - Intentional overdose [Recovered/Resolved]
  - Hallucination, visual [Recovered/Resolved]
  - Suicide attempt [Recovered/Resolved]
  - Vision blurred [Recovered/Resolved]
  - Disorientation [Recovered/Resolved]
  - Delirium [Recovered/Resolved]
  - Leukocytosis [Recovered/Resolved]
  - Tachycardia [Recovered/Resolved]
  - Serotonin syndrome [Recovered/Resolved]
  - Mydriasis [Recovered/Resolved]
  - Overdose [Recovered/Resolved]
  - Toxicity to various agents [Recovered/Resolved]
  - Opsoclonus myoclonus [Recovered/Resolved]
  - Delusion [Recovered/Resolved]
  - Dyskinesia [Recovered/Resolved]
  - Drug abuse [Unknown]
